FAERS Safety Report 6379190-X (Version None)
Quarter: 2009Q3

REPORT INFORMATION
  Report Type: 
  Country: None (occurrence: None)
  Receive Date: 20090923
  Receipt Date: 20090914
  Transmission Date: 20100115
  Serious: Yes (Other)
  Sender: FDA-Public Use
  Company Number: 2009SP025464

PATIENT
  Age: 73 Year
  Sex: Male

DRUGS (2)
  1. INTEGRILIN [Suspect]
     Indication: DRUG USE FOR UNKNOWN INDICATION
  2. UNFRACTIONATED HEPARIN (CON.) [Concomitant]

REACTIONS (4)
  - HAEMORRHAGE [None]
  - PETECHIAE [None]
  - THROMBOCYTOPENIA [None]
  - WOUND SECRETION [None]
